FAERS Safety Report 12384851 (Version 2)
Quarter: 2016Q2

REPORT INFORMATION
  Report Type: Spontaneous
  Country: JP (occurrence: JP)
  Receive Date: 20160519
  Receipt Date: 20160616
  Transmission Date: 20160815
  Serious: Yes (Other)
  Sender: FDA-Public Use
  Company Number: PHJP2016JP012517

PATIENT
  Age: 73 Year
  Sex: Female

DRUGS (4)
  1. NEORAL [Suspect]
     Active Substance: CYCLOSPORINE
     Indication: COLLAGEN DISORDER
     Dosage: AFTER MEALS
     Route: 048
     Dates: start: 201602
  2. NEORAL [Suspect]
     Active Substance: CYCLOSPORINE
     Indication: INTERSTITIAL LUNG DISEASE
  3. NEORAL [Suspect]
     Active Substance: CYCLOSPORINE
     Indication: DERMATOMYOSITIS
  4. NEORAL [Suspect]
     Active Substance: CYCLOSPORINE
     Indication: RHEUMATIC DISORDER

REACTIONS (3)
  - Ascites [Recovering/Resolving]
  - Product use issue [Unknown]
  - Drug level fluctuating [Recovered/Resolved]

NARRATIVE: CASE EVENT DATE: 201602
